FAERS Safety Report 9674639 (Version 2)
Quarter: 2013Q4

REPORT INFORMATION
  Report Type: Spontaneous
  Country: US (occurrence: US)
  Receive Date: 20131107
  Receipt Date: 20131122
  Transmission Date: 20140711
  Serious: Yes (Congenital Anomaly)
  Sender: FDA-Public Use
  Company Number: US-JNJFOC-20131017197

PATIENT
  Sex: Male
  Weight: 4.1 kg

DRUGS (4)
  1. PREZISTA [Suspect]
     Indication: HIV INFECTION
     Route: 064
     Dates: start: 20120807
  2. RITONAVIR [Suspect]
     Indication: HIV INFECTION
     Route: 064
     Dates: start: 20040206
  3. SELZENTRY [Suspect]
     Indication: HIV INFECTION
     Route: 064
     Dates: start: 20120720
  4. ISENTRESS [Suspect]
     Indication: HIV INFECTION
     Route: 064
     Dates: start: 20120720

REACTIONS (3)
  - Kidney enlargement [Recovered/Resolved]
  - Foetal exposure during pregnancy [Recovered/Resolved]
  - Congenital renal disorder [Unknown]
